FAERS Safety Report 6781249-X (Version None)
Quarter: 2010Q2

REPORT INFORMATION
  Report Type: 
  Country: None (occurrence: None)
  Receive Date: 20100621
  Receipt Date: 20100607
  Transmission Date: 20101027
  Serious: Yes (Other)
  Sender: FDA-Public Use
  Company Number: PHBS2007BR11536

PATIENT
  Sex: Female

DRUGS (3)
  1. METHERGINE [Suspect]
     Indication: HAEMORRHAGE
     Dosage: 0.125 MG, Q2H
     Route: 048
  2. METHERGINE [Suspect]
     Indication: UTERINE LEIOMYOMA
     Dosage: 0.125 MG, Q3H
  3. METHERGINE [Suspect]
     Dosage: UNK
     Dates: start: 20100401

REACTIONS (9)
  - BURNING SENSATION [None]
  - ERYSIPELAS [None]
  - LYMPHATIC DISORDER [None]
  - NODULE ON EXTREMITY [None]
  - OEDEMA PERIPHERAL [None]
  - OPEN WOUND [None]
  - PAIN IN EXTREMITY [None]
  - WOUND COMPLICATION [None]
  - WOUND SECRETION [None]
